FAERS Safety Report 8308247-9 (Version None)
Quarter: 2012Q2

REPORT INFORMATION
  Report Type: 
  Country: None (occurrence: None)
  Receive Date: 20120424
  Receipt Date: 20120416
  Transmission Date: 20120825
  Serious: Yes (Life-Threatening, Hospitalization, Other)
  Sender: FDA-Public Use
  Company Number: DE-JNJFOC-20120309978

PATIENT
  Sex: Male
  Weight: 70 kg

DRUGS (5)
  1. METOPROLOL TARTRATE [Concomitant]
     Indication: HYPERTENSION
  2. VALSARTAN [Concomitant]
     Indication: HYPERTENSION
     Route: 048
  3. LEVOFLOXACIN [Concomitant]
     Indication: INFECTION
     Route: 050
  4. RIVAROXABAN [Suspect]
     Indication: ATRIAL FIBRILLATION
     Route: 048
     Dates: start: 20120312, end: 20120315
  5. ASPIRIN [Suspect]
     Indication: ILL-DEFINED DISORDER

REACTIONS (3)
  - PERICARDIAL HAEMORRHAGE [None]
  - HAEMORRHAGIC DIATHESIS [None]
  - DYSPNOEA [None]
